FAERS Safety Report 18564227 (Version 1)
Quarter: 2020Q4

REPORT INFORMATION
  Report Type: Spontaneous
  Country: JP (occurrence: JP)
  Receive Date: 20201201
  Receipt Date: 20201201
  Transmission Date: 20210114
  Serious: Yes (Other)
  Sender: FDA-Public Use
  Company Number: JP-PFIZER INC-2020465974

PATIENT
  Age: 84 Year
  Sex: Male

DRUGS (4)
  1. DROXIDOPA [Concomitant]
     Active Substance: DROXIDOPA
     Dosage: 300 MG
     Route: 048
  2. ALPRAZOLAM. [Suspect]
     Active Substance: ALPRAZOLAM
     Dosage: 0.4 MG, DAILY
  3. DROXIDOPA [Concomitant]
     Active Substance: DROXIDOPA
     Dosage: 600 UNK
     Route: 048
  4. RISPERIDONE. [Concomitant]
     Active Substance: RISPERIDONE
     Dosage: 0.5 MG, DAILY

REACTIONS (1)
  - Neuroleptic malignant syndrome [Recovering/Resolving]
